FAERS Safety Report 6760428-1 (Version None)
Quarter: 2010Q2

REPORT INFORMATION
  Report Type: 
  Country: None (occurrence: None)
  Receive Date: 20100608
  Receipt Date: 20100526
  Transmission Date: 20101027
  Serious: Yes (Disabling)
  Sender: FDA-Public Use
  Company Number: PHFR2010GB00799

PATIENT
  Age: 68 Year
  Sex: Male
  Weight: 90 kg

DRUGS (3)
  1. DICLOFENAC [Suspect]
     Indication: POSTOPERATIVE HERNIA
     Dosage: UNK
     Route: 048
     Dates: start: 20100201, end: 20100320
  2. PROSTIN 15M [Suspect]
     Indication: POSTOPERATIVE HERNIA
     Dosage: UNK
     Route: 048
     Dates: start: 20091201, end: 20100406
  3. CETIRIZINE HYDROCHLORIDE [Concomitant]
     Indication: HOUSE DUST ALLERGY
     Dosage: UNK
     Route: 048

REACTIONS (1)
  - MYALGIA [None]
